FAERS Safety Report 8002806-9 (Version None)
Quarter: 2011Q4

REPORT INFORMATION
  Report Type: 
  Country: None (occurrence: None)
  Receive Date: 20111222
  Receipt Date: 20110216
  Transmission Date: 20120403
  Serious: No
  Sender: FDA-Public Use
  Company Number: US-GLAXOSMITHKLINE-A0870209A

PATIENT
  Age: 77 Year
  Sex: Male

DRUGS (5)
  1. NORVASC [Concomitant]
  2. AVODART [Suspect]
     Indication: BENIGN PROSTATIC HYPERPLASIA
     Dosage: .5MG PER DAY
     Route: 048
     Dates: start: 20100601
  3. METOPROLOL TARTRATE [Concomitant]
  4. CLONAZEPAM [Concomitant]
  5. ALTACE [Concomitant]

REACTIONS (4)
  - URINARY TRACT DISORDER [None]
  - ORAL PAIN [None]
  - DRUG INEFFECTIVE [None]
  - PRODUCT QUALITY ISSUE [None]
